FAERS Safety Report 4817968-1 (Version None)
Quarter: 2005Q4

REPORT INFORMATION
  Report Type: 
  Country: None (occurrence: None)
  Receive Date: 20051101
  Receipt Date: 20051101
  Transmission Date: 20060501
  Serious: Yes (Hospitalization)
  Sender: FDA-Public Use
  Company Number: None

PATIENT
  Age: 88 Year
  Sex: Male
  Weight: 62.5964 kg

DRUGS (11)
  1. WARFARIN [Suspect]
     Indication: HEART VALVE REPLACEMENT
     Dosage: NON-VA
  2. ALBUTEROL 90/ITRATROP 18MCG [Concomitant]
  3. BUMETANIDE [Concomitant]
  4. COLESTIPOL GRANULES [Concomitant]
  5. DOXYCYCLINE HYCLATE [Concomitant]
  6. FLUNISOLIDE [Concomitant]
  7. GLIPIZIDE [Concomitant]
  8. HYDROCODONE 5/ ACETAMINOPHEN 500MG [Concomitant]
  9. METOPROLOL TARTRATE [Concomitant]
  10. PREDNISONE [Concomitant]
  11. SPIRONOLACTONE [Concomitant]

REACTIONS (1)
  - RECTAL HAEMORRHAGE [None]
